FAERS Safety Report 5192348-0 (Version None)
Quarter: 2006Q4

REPORT INFORMATION
  Report Type: 
  Country: None (occurrence: None)
  Receive Date: 20061227
  Receipt Date: 20061113
  Transmission Date: 20070319
  Serious: Yes (Hospitalization, Other)
  Sender: FDA-Public Use
  Company Number: IN-PFIZER INC-2006141675

PATIENT
  Sex: Male

DRUGS (6)
  1. XALATAN [Suspect]
     Indication: OPEN ANGLE GLAUCOMA
     Dosage: TEXT:0.005% UNIT DOSE AND TOTAL DAILY DOSE
     Route: 061
  2. PREDNISOLONE [Concomitant]
     Route: 061
     Dates: start: 20060201, end: 20061001
  3. TRIAMCINOLONE [Concomitant]
     Route: 031
     Dates: start: 20061001
  4. ATROPINE [Concomitant]
     Route: 061
  5. DORZOLAMIDE HCL [Concomitant]
     Dates: start: 20060401, end: 20061001
  6. TIMOLOL MALEATE [Concomitant]
     Dates: start: 20060401, end: 20061001

REACTIONS (3)
  - CATARACT OPERATION [None]
  - INTRAOCULAR PRESSURE INCREASED [None]
  - UVEITIS [None]
